FAERS Safety Report 7217625-0 (Version None)
Quarter: 2011Q1

REPORT INFORMATION
  Report Type: 
  Country: None (occurrence: None)
  Receive Date: 20110110
  Receipt Date: 20101221
  Transmission Date: 20110831
  Serious: Yes (Hospitalization)
  Sender: FDA-Public Use
  Company Number: FR-ROCHE-749572

PATIENT
  Sex: Male

DRUGS (8)
  1. METFORMIN [Concomitant]
     Route: 048
     Dates: end: 20100823
  2. APRANAX [Suspect]
     Route: 065
     Dates: end: 20100822
  3. KARDEGIC [Suspect]
     Route: 048
  4. PLAVIX [Suspect]
     Route: 048
     Dates: end: 20100823
  5. TAHOR [Concomitant]
     Route: 048
     Dates: end: 20100823
  6. APRANAX [Suspect]
     Route: 065
  7. MICARDIS [Concomitant]
     Route: 048
  8. LAMALINE [Concomitant]
     Route: 048

REACTIONS (3)
  - CHEST PAIN [None]
  - GASTRIC ULCER HAEMORRHAGE [None]
  - ANAEMIA [None]
